FAERS Safety Report 8972968 (Version 1)
Quarter: 2012Q4

REPORT INFORMATION
  Report Type: 
  Country: US (occurrence: US)
  Receive Date: 20121218
  Receipt Date: 20121218
  Transmission Date: 20130627
  Serious: No
  Sender: FDA-Public Use
  Company Number: US-BRISTOL-MYERS SQUIBB COMPANY-16458986

PATIENT
  Age: 46 Year
  Sex: Female

DRUGS (6)
  1. ABILIFY [Suspect]
  2. WELLBUTRIN [Suspect]
  3. AMBIEN [Concomitant]
  4. METHADONE [Concomitant]
  5. SOMA [Concomitant]
  6. XANAX [Concomitant]

REACTIONS (2)
  - Somnambulism [Unknown]
  - Fatigue [Unknown]
